FAERS Safety Report 12556647 (Version 2)
Quarter: 2016Q3

REPORT INFORMATION
  Report Type: Spontaneous
  Country: US (occurrence: US)
  Receive Date: 20160714
  Receipt Date: 20160824
  Transmission Date: 20161109
  Serious: Yes (Other)
  Sender: FDA-Public Use
  Company Number: US-PFIZER INC-2016334069

PATIENT
  Age: 27 Year
  Sex: Female
  Weight: 86 kg

DRUGS (4)
  1. LEVOTHYROXINE. [Concomitant]
     Active Substance: LEVOTHYROXINE
     Indication: HYPOTHYROIDISM
     Dosage: 0.1 MG, 1X/DAY
     Dates: start: 2000
  2. METOPROLOL. [Concomitant]
     Active Substance: METOPROLOL
     Indication: TACHYCARDIA
     Dosage: 25 MG, 1X/DAY
  3. DESMOPRESSIN [Concomitant]
     Active Substance: DESMOPRESSIN
     Dosage: 0.2 MG, 3X/DAY
     Dates: start: 2000
  4. GENOTROPIN [Suspect]
     Active Substance: SOMATROPIN
     Indication: MOOD ALTERED
     Dosage: 0.6 MG, DAILY
     Route: 058
     Dates: end: 2016

REACTIONS (2)
  - Product use issue [Unknown]
  - Glucose tolerance impaired [Not Recovered/Not Resolved]
